FAERS Safety Report 18502166 (Version 1)
Quarter: 2020Q4

REPORT INFORMATION
  Report Type: Report from Study
  Country: US (occurrence: US)
  Receive Date: 20201113
  Receipt Date: 20201113
  Transmission Date: 20210114
  Serious: Yes (Death)
  Sender: FDA-Public Use
  Company Number: US-COVIS PHARMA B.V.-2020COV00538

PATIENT
  Sex: Male

DRUGS (26)
  1. SYMBICORT [Suspect]
     Active Substance: BUDESONIDE\FORMOTEROL FUMARATE DIHYDRATE
     Route: 055
  2. METOPROLOL TARTRATE. [Suspect]
     Active Substance: METOPROLOL TARTRATE
  3. ALBUTEROL. [Concomitant]
     Active Substance: ALBUTEROL
  4. NUCYNTA [Concomitant]
     Active Substance: TAPENTADOL HYDROCHLORIDE
  5. FASENRA [Suspect]
     Active Substance: BENRALIZUMAB
     Indication: ASTHMA
     Dosage: 30 MG, Q8WK (EVERY 8 WEEKS)
     Route: 058
     Dates: start: 20201015
  6. PREDNISONE. [Concomitant]
     Active Substance: PREDNISONE
  7. PRIVIGEN [Concomitant]
     Active Substance: HUMAN IMMUNOGLOBULIN G
  8. SINGULAIR [Concomitant]
     Active Substance: MONTELUKAST SODIUM
  9. EUTHYROX [Concomitant]
     Active Substance: LEVOTHYROXINE SODIUM
  10. OXYCODONE HYDROCHLORIDE. [Concomitant]
     Active Substance: OXYCODONE HYDROCHLORIDE
  11. PROPECIA [Concomitant]
     Active Substance: FINASTERIDE
  12. ACYCLOVIR. [Concomitant]
     Active Substance: ACYCLOVIR
  13. METHOCARBAMOL. [Concomitant]
     Active Substance: METHOCARBAMOL
  14. VASCEPA [Concomitant]
     Active Substance: ICOSAPENT ETHYL
  15. AMBIEN [Concomitant]
     Active Substance: ZOLPIDEM TARTRATE
  16. FENOFIBRATE. [Concomitant]
     Active Substance: FENOFIBRATE
  17. FERROUS FUMARATE [Concomitant]
     Active Substance: FERROUS FUMARATE
  18. ALBUTEROL W/IPRATROPIUM [Concomitant]
     Active Substance: ALBUTEROL\IPRATROPIUM
  19. SULFATED OILS [Concomitant]
  20. CLARITHROMYCIN. [Concomitant]
     Active Substance: CLARITHROMYCIN
  21. VIIBRYD [Concomitant]
     Active Substance: VILAZODONE HYDROCHLORIDE
  22. OMEPRAZOLE MAGNESIUM. [Suspect]
     Active Substance: OMEPRAZOLE MAGNESIUM
     Route: 048
  23. CRESTOR [Suspect]
     Active Substance: ROSUVASTATIN CALCIUM
     Route: 048
  24. ARIPIPRAZOLE. [Concomitant]
     Active Substance: ARIPIPRAZOLE
  25. MELOXICAM. [Concomitant]
     Active Substance: MELOXICAM
  26. TRAZODONE HYDROCHLORIDE. [Concomitant]
     Active Substance: TRAZODONE HYDROCHLORIDE

REACTIONS (1)
  - Death [Fatal]
